FAERS Safety Report 9170924 (Version 3)
Quarter: 2013Q2

REPORT INFORMATION
  Report Type: Report from Study
  Country: US (occurrence: US)
  Receive Date: 20130319
  Receipt Date: 20130402
  Transmission Date: 20140414
  Serious: No
  Sender: FDA-Public Use
  Company Number: US-VERTEX PHARMACEUTICALS INC.-2013-003701

PATIENT
  Age: 67 Year
  Sex: Male
  Weight: 95 kg

DRUGS (8)
  1. VX-950 (TELAPREVIR) [Suspect]
     Indication: HEPATITIS C
     Dosage: 750 MG, TID
     Route: 048
     Dates: start: 20130103, end: 20130325
  2. RIBAVIRIN [Suspect]
     Indication: HEPATITIS C
     Dosage: 400 MG, BID
     Route: 048
     Dates: start: 20130103
  3. RIBAVIRIN [Suspect]
     Dosage: 400 MG AM, 200 MG PM
     Route: 048
     Dates: start: 20130117
  4. RIBAVIRIN [Suspect]
     Dosage: 600 MG AND 800 MG, QOD
     Route: 048
     Dates: start: 20130205
  5. RIBAVIRIN [Suspect]
     Dosage: 400 MG, BID
     Route: 048
     Dates: start: 20130228
  6. PEGASYS [Suspect]
     Indication: HEPATITIS C
     Dosage: 180 ?G, QW
     Route: 058
     Dates: start: 20130103
  7. DEXILANT [Concomitant]
     Indication: GASTROOESOPHAGEAL REFLUX DISEASE
     Dosage: 60 MG, QD
     Route: 048
  8. IBUPROFEN [Concomitant]
     Indication: PAIN
     Dosage: UNK, PRN

REACTIONS (7)
  - Diverticulum [Not Recovered/Not Resolved]
  - Abdominal discomfort [Unknown]
  - Rash erythematous [Not Recovered/Not Resolved]
  - Anaemia [Not Recovered/Not Resolved]
  - Anal haemorrhage [Not Recovered/Not Resolved]
  - Proctalgia [Not Recovered/Not Resolved]
  - Vomiting [Unknown]
